FAERS Safety Report 6980217-2 (Version None)
Quarter: 2010Q3

REPORT INFORMATION
  Report Type: 
  Country: None (occurrence: None)
  Receive Date: 20100909
  Receipt Date: 20100827
  Transmission Date: 20110219
  Serious: Yes (Hospitalization, Other)
  Sender: FDA-Public Use
  Company Number: ENTC2010-0292

PATIENT
  Age: 60 Year
  Sex: Female
  Weight: 77 kg

DRUGS (5)
  1. STALEVO 100 [Suspect]
     Indication: PARKINSON'S DISEASE
     Dosage: 150/37.5/200 MG, 3 DF ORAL
     Route: 048
     Dates: start: 20060101
  2. BIPERIDEN HYDROCHLORIDE TAB [Concomitant]
  3. PROPRANOLOL [Concomitant]
  4. PAROXETINE HCL [Concomitant]
  5. CLONAZEPAM [Concomitant]

REACTIONS (3)
  - ANXIETY [None]
  - HYPERTENSION [None]
  - PAIN [None]
